FAERS Safety Report 6694960-6 (Version None)
Quarter: 2010Q2

REPORT INFORMATION
  Report Type: 
  Country: None (occurrence: None)
  Receive Date: 20100421
  Receipt Date: 20100115
  Transmission Date: 20101027
  Serious: Yes (Death, Other)
  Sender: FDA-Public Use
  Company Number: TPH-00239

PATIENT
  Age: 45 Year
  Sex: Female

DRUGS (4)
  1. TRIQUILAR 28 LOT NUMBER: 82058A [Suspect]
     Indication: DYSMENORRHOEA
     Dosage: 1 DF QD
  2. TRIQUILAR 28 LOT NUMBER: 82058A [Suspect]
     Indication: MENORRHAGIA
     Dosage: 1 DF QD
  3. IBUPROFEN [Concomitant]
  4. SALBUTAMOL (SALBUTAMOL) [Concomitant]

REACTIONS (20)
  - ARTERIOGRAM CORONARY ABNORMAL [None]
  - BRADYCARDIA [None]
  - BUNDLE BRANCH BLOCK RIGHT [None]
  - CARDIAC ARREST [None]
  - CARDIOGENIC SHOCK [None]
  - CHEST X-RAY ABNORMAL [None]
  - DIALYSIS [None]
  - ELECTROCARDIOGRAM ST SEGMENT ELEVATION [None]
  - ELECTROMECHANICAL DISSOCIATION [None]
  - FALL [None]
  - GASTROINTESTINAL HAEMORRHAGE [None]
  - HAEMOTHORAX [None]
  - HYPERCOAGULATION [None]
  - JOINT SPRAIN [None]
  - LOSS OF CONSCIOUSNESS [None]
  - LUNG INFILTRATION [None]
  - PULMONARY EMBOLISM [None]
  - RENAL FAILURE ACUTE [None]
  - RENAL TUBULAR NECROSIS [None]
  - SINUS TACHYCARDIA [None]
